FAERS Safety Report 6432584-6 (Version None)
Quarter: 2009Q4

REPORT INFORMATION
  Report Type: 
  Country: None (occurrence: None)
  Receive Date: 20091109
  Receipt Date: 20091103
  Transmission Date: 20100525
  Serious: Yes (Death, Other)
  Sender: FDA-Public Use
  Company Number: US-WYE-H07908309

PATIENT
  Sex: Female

DRUGS (4)
  1. PREMPRO [Suspect]
  2. PROVERA [Suspect]
  3. NORETHINDRONE ACETATE [Suspect]
  4. PREMARIN [Suspect]

REACTIONS (2)
  - BREAST CANCER [None]
  - LUNG NEOPLASM MALIGNANT [None]
